FAERS Safety Report 13988613 (Version 1)
Quarter: 2017Q3

REPORT INFORMATION
  Report Type: Spontaneous
  Country: FR (occurrence: FR)
  Receive Date: 20170919
  Receipt Date: 20170919
  Transmission Date: 20171128
  Serious: Yes (Other)
  Sender: FDA-Public Use
  Company Number: FR-MERCK KGAA-2026890

PATIENT
  Sex: Female

DRUGS (2)
  1. NOVOTHYROX [Suspect]
     Active Substance: LEVOTHYROXINE SODIUM
  2. NOVOTHYROX [Suspect]
     Active Substance: LEVOTHYROXINE SODIUM
     Indication: POST PROCEDURAL HYPOTHYROIDISM

REACTIONS (8)
  - Fatigue [Not Recovered/Not Resolved]
  - Hyperthyroidism [None]
  - Diarrhoea [None]
  - Anxiety [None]
  - Blood thyroid stimulating hormone abnormal [Recovered/Resolved]
  - Blood pressure increased [None]
  - Hyperhidrosis [None]
  - Gastrointestinal pain [None]
